FAERS Safety Report 5252958-9 (Version None)
Quarter: 2007Q1

REPORT INFORMATION
  Report Type: 
  Country: None (occurrence: None)
  Receive Date: 20070227
  Receipt Date: 20070212
  Transmission Date: 20070707
  Serious: Yes (Other)
  Sender: FDA-Public Use
  Company Number: 100#08#2007-00441

PATIENT
  Age: 65 Year
  Sex: Male

DRUGS (3)
  1. CARBOPLATIN [Suspect]
     Indication: MANTLE CELL LYMPHOMA
     Dosage: 1.5 G OVER A 3 DAY PERIOD
  2. ETOPOSIDE [Suspect]
     Indication: MANTLE CELL LYMPHOMA
     Dosage: 2.5 G OVER A 3-DAY PERIOD
  3. TREOSULFAN (TREOSULFAN) (TREOSULFAN) [Suspect]
     Indication: MANTLE CELL LYMPHOMA
     Dosage: 70.6 G OVER A 3-DAY PERIOD

REACTIONS (6)
  - ARRHYTHMIA SUPRAVENTRICULAR [None]
  - HAEMOGLOBIN DECREASED [None]
  - PAROXYSMAL ARRHYTHMIA [None]
  - PERICARDITIS [None]
  - PLATELET COUNT DECREASED [None]
  - WHITE BLOOD CELL COUNT DECREASED [None]
